FAERS Safety Report 7470258-3 (Version None)
Quarter: 2011Q2

REPORT INFORMATION
  Report Type: 
  Country: None (occurrence: None)
  Receive Date: 20110510
  Receipt Date: 20110503
  Transmission Date: 20111010
  Serious: Yes (Hospitalization)
  Sender: FDA-Public Use
  Company Number: FR-KINGPHARMUSA00001-K201100535

PATIENT
  Age: 48 Year
  Sex: Female

DRUGS (4)
  1. TORSEMIDE [Suspect]
     Dosage: 50 MG, SINGLE
     Route: 048
     Dates: start: 20110316, end: 20110316
  2. MIDAZOLAM HCL [Suspect]
     Dosage: 75 MG, SINGLE
     Route: 048
     Dates: start: 20110316, end: 20110316
  3. ALTACE [Suspect]
     Dosage: 300 MG, SINGLE
     Route: 048
     Dates: start: 20110316, end: 20110316
  4. DIURETICS [Suspect]
     Dosage: UNK
     Dates: end: 20110316

REACTIONS (12)
  - AGITATION [None]
  - BLOOD CREATININE INCREASED [None]
  - SUICIDE ATTEMPT [None]
  - LOSS OF CONSCIOUSNESS [None]
  - DEHYDRATION [None]
  - INTENTIONAL OVERDOSE [None]
  - POLYURIA [None]
  - CONFUSIONAL AROUSAL [None]
  - COMA [None]
  - PERFORMANCE STATUS DECREASED [None]
  - SOMNOLENCE [None]
  - DRUG ABUSE [None]
